FAERS Safety Report 22319666 (Version 2)
Quarter: 2023Q2

REPORT INFORMATION
  Report Type: Spontaneous
  Country: US (occurrence: US)
  Receive Date: 20230515
  Receipt Date: 20230606
  Transmission Date: 20230722
  Serious: No
  Sender: FDA-Public Use
  Company Number: US-PFIZER INC-202300186663

PATIENT
  Age: 16 Year
  Sex: Female
  Weight: 52.16 kg

DRUGS (1)
  1. GENOTROPIN [Suspect]
     Active Substance: SOMATROPIN
     Indication: Turner^s syndrome
     Dosage: 2.8 MG, DAILY, (EVERY NIGHT)
     Dates: start: 2023

REACTIONS (2)
  - Device dispensing error [Unknown]
  - Device mechanical issue [Unknown]
